FAERS Safety Report 4568430-5 (Version None)
Quarter: 2005Q1

REPORT INFORMATION
  Report Type: 
  Country: None (occurrence: None)
  Receive Date: 20050131
  Receipt Date: 20050117
  Transmission Date: 20050727
  Serious: Yes (Hospitalization, Other)
  Sender: FDA-Public Use
  Company Number: HQWYE656317JAN05

PATIENT
  Age: 37 Year
  Sex: Male

DRUGS (7)
  1. ADVIL [Suspect]
     Indication: INFLUENZA
     Dosage: ORAL
     Route: 048
     Dates: start: 20041127, end: 20041129
  2. PROPRANOLOL [Suspect]
     Indication: PALPITATIONS
     Dates: start: 20041115, end: 20041129
  3. ACETAMINOPHEN [Suspect]
     Indication: INFLUENZA
     Dates: start: 20041130, end: 20041201
  4. ACETAMINOPHEN [Suspect]
     Indication: INFLUENZA
     Dates: start: 20041127
  5. STRESAM (ETIFOXINE,) [Suspect]
     Indication: PALPITATIONS
     Dates: start: 20041115, end: 20041129
  6. LEXOMIL (BROMAZEPAM) [Concomitant]
  7. STABLON (TIANEPTINE) [Concomitant]

REACTIONS (6)
  - EAR DISORDER [None]
  - LARYNGEAL DISORDER [None]
  - LEUKOCYTOSIS [None]
  - NASAL DISORDER [None]
  - PYREXIA [None]
  - RASH MACULO-PAPULAR [None]
